FAERS Safety Report 13903679 (Version 3)
Quarter: 2018Q1

REPORT INFORMATION
  Report Type: Spontaneous
  Country: GB (occurrence: GB)
  Receive Date: 20170824
  Receipt Date: 20180206
  Transmission Date: 20180508
  Serious: Yes (Other)
  Sender: FDA-Public Use
  Company Number: GB-009507513-1708GBR010121

PATIENT
  Age: 59 Year
  Sex: Male

DRUGS (6)
  1. CYCLOPHOSPHAMIDE. [Suspect]
     Active Substance: CYCLOPHOSPHAMIDE
     Indication: CARDIAC AMYLOIDOSIS
     Dosage: 21 DAYS CYCLES
     Route: 065
     Dates: start: 201307
  2. BORTEZOMIB [Suspect]
     Active Substance: BORTEZOMIB
     Indication: CARDIAC AMYLOIDOSIS
     Dosage: 21 DAYS CYCLES
     Route: 065
     Dates: start: 201307
  3. DEXAMETHASONE. [Suspect]
     Active Substance: DEXAMETHASONE
     Indication: CARDIAC AMYLOIDOSIS
     Dosage: STRENGTH: 3.8 MG/ML, 21-DAY CYCLES
     Route: 065
     Dates: start: 201307
  4. BORTEZOMIB [Suspect]
     Active Substance: BORTEZOMIB
     Dosage: 21 DAYS CYCLES
     Route: 065
     Dates: start: 201307
  5. DEXAMETHASONE. [Suspect]
     Active Substance: DEXAMETHASONE
     Dosage: STRENGTH: 3.8 MG/ML, 21-DAY CYCLES
     Route: 065
     Dates: start: 201307
  6. DEXAMETHASONE. [Suspect]
     Active Substance: DEXAMETHASONE
     Dosage: STRENGTH: 3.8 MG/ML, 21-DAY CYCLES
     Route: 065
     Dates: start: 201307

REACTIONS (2)
  - Autonomic neuropathy [Recovered/Resolved]
  - Orthostatic hypotension [Recovered/Resolved]

NARRATIVE: CASE EVENT DATE: 2013
